FAERS Safety Report 7338377-X (Version None)
Quarter: 2011Q1

REPORT INFORMATION
  Report Type: 
  Country: None (occurrence: None)
  Receive Date: 20110308
  Receipt Date: 20110209
  Transmission Date: 20110831
  Serious: No
  Sender: FDA-Public Use
  Company Number: US-B.I. PHARMACEUTICALS,INC./RIDGEFIELD-2010-BP-14083BP

PATIENT
  Sex: Female

DRUGS (2)
  1. XOPENEX [Concomitant]
  2. PRADAXA [Suspect]
     Indication: ATRIAL FIBRILLATION
     Dates: end: 20101222

REACTIONS (2)
  - ASTHENIA [None]
  - DIZZINESS [None]
